FAERS Safety Report 9916438 (Version 1)
Quarter: 2014Q1

REPORT INFORMATION
  Report Type: Spontaneous
  Country: ES (occurrence: None)
  Receive Date: 20140219
  Receipt Date: 20140219
  Transmission Date: 20141002
  Serious: Yes (Hospitalization)
  Sender: FDA-Public Use
  Company Number: 2014P1001092

PATIENT
  Age: 78 Year
  Sex: Female

DRUGS (12)
  1. AMIODARONE [Suspect]
     Indication: VENTRICULAR TACHYCARDIA
     Route: 042
     Dates: start: 201006, end: 2010
  2. RANOLAZINE [Suspect]
     Dates: start: 2010, end: 2010
  3. ASPIRIN [Concomitant]
  4. TOPIRAMATE [Concomitant]
  5. SIMVASTATIN [Concomitant]
  6. FUROSEMIDE [Concomitant]
  7. OMEPRAZOLE [Concomitant]
  8. ACENOCOUMAROL [Concomitant]
  9. NITROGLYCERIN [Concomitant]
  10. HYDRALAZINE [Concomitant]
  11. GLICAZIDE [Concomitant]
  12. ALLOPURINOL [Concomitant]

REACTIONS (14)
  - Angina pectoris [None]
  - Dyspnoea [None]
  - Orthopnoea [None]
  - Atrial fibrillation [None]
  - Nodal rhythm [None]
  - Extrasystoles [None]
  - Extrasystoles [None]
  - Ventricular tachycardia [None]
  - Torsade de pointes [None]
  - Electrocardiogram QRS complex shortened [None]
  - Electrocardiogram QT prolonged [None]
  - Left ventricular hypertrophy [None]
  - Hypokinesia [None]
  - Mitral valve incompetence [None]
